FAERS Safety Report 20427102 (Version 1)
Quarter: 2022Q1

REPORT INFORMATION
  Report Type: Report from Study
  Country: US (occurrence: US)
  Receive Date: 20220204
  Receipt Date: 20220204
  Transmission Date: 20220424
  Serious: No
  Sender: FDA-Public Use
  Company Number: US-EXELIXIS-CABO-21043233

PATIENT
  Sex: Male

DRUGS (2)
  1. CABOMETYX [Suspect]
     Active Substance: CABOZANTINIB S-MALATE
     Indication: Hepatocellular carcinoma
     Dosage: 40 MG, QD (2 TAB QD 2 DAYS, 1 TAB ON DAY 3, REPEAT CYCLE)
     Route: 048
     Dates: start: 20191212
  2. CABOMETYX [Suspect]
     Active Substance: CABOZANTINIB S-MALATE
     Indication: Transient ischaemic attack
     Dosage: 40 MG, QD (2 TAB QD 2 DAYS, 1 TAB ON DAY 3, REPEAT CYCLE)
     Route: 048
     Dates: end: 202112

REACTIONS (3)
  - Diarrhoea [Unknown]
  - Decreased appetite [Unknown]
  - Product dose omission issue [Unknown]
